FAERS Safety Report 21847415 (Version 2)
Quarter: 2023Q2

REPORT INFORMATION
  Report Type: Report from Study
  Country: US (occurrence: US)
  Receive Date: 20230111
  Receipt Date: 20230525
  Transmission Date: 20230721
  Serious: No
  Sender: FDA-Public Use
  Company Number: US-002147023-NVSC2023US005798

PATIENT
  Age: 40 Year
  Sex: Male
  Weight: 124.72 kg

DRUGS (2)
  1. TREPROSTINIL [Suspect]
     Active Substance: TREPROSTINIL
     Indication: Pulmonary arterial hypertension
     Dosage: 149 NG/KG/MIN, CONT
     Route: 058
     Dates: start: 20210604
  2. TREPROSTINIL [Suspect]
     Active Substance: TREPROSTINIL
     Dosage: 149 NG/KG/MIN, CONT
     Route: 058

REACTIONS (4)
  - COVID-19 [Unknown]
  - Dyspnoea [Not Recovered/Not Resolved]
  - Fatigue [Not Recovered/Not Resolved]
  - Infusion site pain [Unknown]

NARRATIVE: CASE EVENT DATE: 20230501
